FAERS Safety Report 14333587 (Version 3)
Quarter: 2019Q2

REPORT INFORMATION
  Report Type: Report from Study
  Country: None (occurrence: JP)
  Receive Date: 20171228
  Receipt Date: 20190617
  Transmission Date: 20190711
  Serious: Yes (Other)
  Sender: FDA-Public Use
  Company Number: JP-ABBVIE-17K-087-2186265-00

PATIENT
  Age: 71 Year
  Sex: Female
  Weight: 38 kg

DRUGS (9)
  1. DUODOPA [Suspect]
     Active Substance: CARBIDOPA\LEVODOPA
     Indication: PARKINSON^S DISEASE
     Dosage: MD: 11.8 ML,CD: 5 ML/HR ? 16 HRS
     Route: 050
     Dates: start: 20170914
  2. FLUDROCORTISONE ACETATE. [Concomitant]
     Active Substance: FLUDROCORTISONE ACETATE
     Indication: PRODUCT USED FOR UNKNOWN INDICATION
     Route: 048
  3. MIDODRINE HYDROCHLORIDE. [Concomitant]
     Active Substance: MIDODRINE HYDROCHLORIDE
     Indication: PRODUCT USED FOR UNKNOWN INDICATION
     Route: 048
  4. DUODOPA [Suspect]
     Active Substance: CARBIDOPA\LEVODOPA
     Dosage: TRAIL DOSES
     Route: 050
     Dates: start: 201710, end: 201710
  5. YOKUKANSAN [Concomitant]
     Active Substance: HERBALS
     Indication: PRODUCT USED FOR UNKNOWN INDICATION
     Route: 048
  6. DUODOPA [Suspect]
     Active Substance: CARBIDOPA\LEVODOPA
     Dosage: EXTRA DOSE ADMINISTERED AS PATIENT COULD NOT MOVE
     Route: 050
     Dates: start: 2017
  7. DROXIDOPA [Concomitant]
     Active Substance: DROXIDOPA
     Indication: PRODUCT USED FOR UNKNOWN INDICATION
     Route: 048
  8. QUETIAPINE FUMARATE. [Concomitant]
     Active Substance: QUETIAPINE FUMARATE
     Indication: PRODUCT USED FOR UNKNOWN INDICATION
     Route: 048
  9. DUODOPA [Suspect]
     Active Substance: CARBIDOPA\LEVODOPA
     Dosage: EXTRA DOSE ADMINISTERED TWICE ON SAME DAY
     Route: 050
     Dates: start: 20171130, end: 2017

REACTIONS (7)
  - Dyskinesia [Unknown]
  - Therapeutic product effect incomplete [Unknown]
  - Bradykinesia [Recovered/Resolved]
  - Abdominal pain [Unknown]
  - Dyskinesia [Recovered/Resolved]
  - Deep brain stimulation [Unknown]
  - Bradykinesia [Recovered/Resolved]

NARRATIVE: CASE EVENT DATE: 2017
